FAERS Safety Report 9450899 (Version 2)
Quarter: 2014Q2

REPORT INFORMATION
  Report Type: Spontaneous
  Country: US (occurrence: US)
  Receive Date: 20130809
  Receipt Date: 20140401
  Transmission Date: 20141212
  Serious: Yes (Hospitalization, Other)
  Sender: FDA-Public Use
  Company Number: US-009507513-1307USA017115

PATIENT
  Sex: Female
  Weight: 70.3 kg

DRUGS (2)
  1. NUVARING [Suspect]
     Indication: CONTRACEPTION
     Dosage: UNK
     Route: 067
     Dates: start: 201004, end: 201201
  2. NUVARING [Suspect]
     Indication: ACNE

REACTIONS (26)
  - Thrombolysis [Unknown]
  - Vena cava filter insertion [Unknown]
  - Pulmonary embolism [Unknown]
  - Coagulopathy [Unknown]
  - Deep vein thrombosis [Unknown]
  - Hypersensitivity [Unknown]
  - Drug hypersensitivity [Unknown]
  - Nausea [Unknown]
  - Drug intolerance [Unknown]
  - Pneumonia [Unknown]
  - Asthma [Unknown]
  - Rhinitis allergic [Unknown]
  - Sinus tachycardia [Unknown]
  - Electrocardiogram ST segment abnormal [Unknown]
  - Packed red blood cell transfusion [Unknown]
  - Drug ineffective [Unknown]
  - Drug ineffective [Unknown]
  - Protein C deficiency [Unknown]
  - Antiphospholipid antibodies positive [Unknown]
  - Supraventricular tachycardia [Unknown]
  - Ventricular tachycardia [Unknown]
  - Retroperitoneal haematoma [Unknown]
  - Thoracostomy [Unknown]
  - Pneumothorax [Unknown]
  - Right ventricular dysfunction [Unknown]
  - Off label use [Unknown]
